FAERS Safety Report 4562178-9 (Version None)
Quarter: 2005Q1

REPORT INFORMATION
  Report Type: 
  Country: None (occurrence: None)
  Receive Date: 20050124
  Receipt Date: 20050111
  Transmission Date: 20050727
  Serious: Yes (Other)
  Sender: FDA-Public Use
  Company Number: 2005011627

PATIENT
  Sex: Female
  Weight: 57.1532 kg

DRUGS (3)
  1. NEURONTIN [Suspect]
     Indication: PAIN
     Dosage: 300 MG, ORAL
     Route: 048
     Dates: start: 19980101
  2. ACETAMINOPHEN [Concomitant]
  3. AII OTHER NON-THERAPEUTIC  PRODUCTS [Suspect]

REACTIONS (4)
  - INADEQUATE ANALGESIA [None]
  - OVERDOSE [None]
  - TREATMENT NONCOMPLIANCE [None]
  - WEIGHT INCREASED [None]
